FAERS Safety Report 8764841 (Version 3)
Quarter: 2013Q1

REPORT INFORMATION
  Report Type: Report from Study
  Country: DE (occurrence: DE)
  Receive Date: 20120901
  Receipt Date: 20130123
  Transmission Date: 20140127
  Serious: Yes (Death, Hospitalization)
  Sender: FDA-Public Use
  Company Number: DE-ROCHE-1089507

PATIENT
  Age: 64 Year
  Sex: Female
  Weight: 54 kg

DRUGS (18)
  1. BEVACIZUMAB [Suspect]
     Indication: LUNG ADENOCARCINOMA
     Route: 042
     Dates: start: 20120705
  2. BEVACIZUMAB [Suspect]
     Route: 065
     Dates: start: 20121120, end: 20121120
  3. MORPHINE SULPHATE [Suspect]
     Indication: LUNG ADENOCARCINOMA
     Route: 048
     Dates: start: 20120628
  4. MORPHINE SULPHATE [Suspect]
     Route: 048
     Dates: start: 20120705
  5. PEMETREXED [Suspect]
     Indication: LUNG ADENOCARCINOMA
     Route: 042
     Dates: start: 20120705
  6. PEMETREXED [Suspect]
     Route: 065
     Dates: start: 20121120
  7. CISPLATIN [Suspect]
     Indication: LUNG ADENOCARCINOMA
     Route: 042
     Dates: start: 20120705
  8. CISPLATIN [Suspect]
     Route: 065
     Dates: start: 20121120
  9. PANTOZOL [Concomitant]
     Route: 048
  10. SANDOCAL 1000 [Concomitant]
     Route: 065
  11. PREDNISOLON [Concomitant]
     Route: 065
  12. AMLODIPIN [Concomitant]
     Route: 065
  13. AMLODIPIN [Concomitant]
     Route: 065
  14. THIAMAZOL [Concomitant]
     Route: 065
  15. THIAMAZOL [Concomitant]
     Route: 065
  16. VIANI FORTE [Concomitant]
     Route: 065
  17. GRANISETRON [Concomitant]
     Route: 042
     Dates: start: 20120705
  18. DEXAMETHASON [Concomitant]
     Route: 042
     Dates: start: 20120705

REACTIONS (9)
  - General physical health deterioration [Recovered/Resolved]
  - Pneumonia [Unknown]
  - Constipation [Recovered/Resolved]
  - Nausea [Recovered/Resolved]
  - Pyrexia [Unknown]
  - Oesophageal candidiasis [Not Recovered/Not Resolved]
  - Pancytopenia [Fatal]
  - Cholecystitis infective [Fatal]
  - Multi-organ failure [Fatal]
